FAERS Safety Report 9529637 (Version 1)
Quarter: 2013Q3

REPORT INFORMATION
  Report Type: Spontaneous
  Country: GB (occurrence: None)
  Receive Date: 20130917
  Receipt Date: 20130917
  Transmission Date: 20140515
  Serious: Yes (Death, Hospitalization)
  Sender: FDA-Public Use
  Company Number: None

PATIENT
  Sex: Female

DRUGS (2)
  1. MIFEPRISTONE [Suspect]
     Indication: ABORTION
     Dosage: MIFEPRISTONE  200 MG  PO
     Route: 048
  2. MISOPROSTOL [Concomitant]
     Dosage: MISORPOSTOL  800 MCG,  VAGINALLY?                    400 MCG
     Route: 067

REACTIONS (6)
  - Abdominal pain [None]
  - Vaginal haemorrhage [None]
  - Disseminated intravascular coagulation [None]
  - Cardiac arrest [None]
  - Clostridial infection [None]
  - Sepsis [None]
